FAERS Safety Report 6601883-7 (Version None)
Quarter: 2010Q1

REPORT INFORMATION
  Report Type: 
  Country: None (occurrence: None)
  Receive Date: 20100225
  Receipt Date: 20100217
  Transmission Date: 20100710
  Serious: Yes (Hospitalization)
  Sender: FDA-Public Use
  Company Number: AT-ASTRAZENECA-2010SE05200

PATIENT
  Age: 26472 Day
  Sex: Female
  Weight: 81 kg

DRUGS (15)
  1. FASLODEX [Suspect]
     Indication: BREAST CANCER METASTATIC
     Route: 030
     Dates: start: 20091204, end: 20100104
  2. NEUROMULTIVIT [Concomitant]
     Indication: NERVOUSNESS
     Dosage: TWO TIMES A DAY
     Route: 048
     Dates: start: 20020201, end: 20100217
  3. SELEGILIN [Concomitant]
     Indication: PARKINSON'S DISEASE
     Route: 048
     Dates: start: 20091218, end: 20100217
  4. NICERGIN [Concomitant]
     Indication: ANGIOPATHY
     Dosage: EVERY MORNING
     Route: 048
     Dates: start: 20000101, end: 20100217
  5. CIPRALEX [Concomitant]
     Indication: DEPRESSION
     Route: 048
     Dates: start: 20000101, end: 20100217
  6. TRAZODONE HCL [Concomitant]
     Indication: SLEEP DISORDER
     Route: 048
     Dates: start: 20080929, end: 20100217
  7. LUTIMAX [Concomitant]
     Indication: MACULOPATHY
     Dates: start: 20000101
  8. DURAGESIC-100 [Concomitant]
     Indication: PAIN
     Dosage: 75 UG/H EVERY THREE DAYS
     Dates: start: 20091202
  9. HYDAL [Concomitant]
     Indication: PAIN
  10. ZOMETA [Concomitant]
     Dates: start: 20091201
  11. FORLAX [Concomitant]
     Indication: CONSTIPATION
  12. FORLAX [Concomitant]
  13. PANTOPRAZOLE [Concomitant]
     Indication: GASTROOESOPHAGEAL REFLUX PROPHYLAXIS
  14. METOCLOPRAMIDE HYDROCHLORIDE [Concomitant]
     Indication: NAUSEA
  15. METOCLOPRAMIDE HYDROCHLORIDE [Concomitant]
     Dosage: AS REQUIRED

REACTIONS (1)
  - HEPATIC NEOPLASM [None]
